FAERS Safety Report 13425434 (Version 3)
Quarter: 2017Q4

REPORT INFORMATION
  Report Type: Spontaneous
  Country: US (occurrence: US)
  Receive Date: 20170411
  Receipt Date: 20171110
  Transmission Date: 20180320
  Serious: No
  Sender: FDA-Public Use
  Company Number: US-TEVA-757555ACC

PATIENT
  Sex: Female

DRUGS (12)
  1. IRON [Concomitant]
     Active Substance: IRON
  2. TURMERIC [Concomitant]
     Active Substance: HERBALS\TURMERIC
  3. COPAXONE [Suspect]
     Active Substance: GLATIRAMER ACETATE
     Indication: MULTIPLE SCLEROSIS
     Route: 058
     Dates: start: 20110923
  4. LEVOTHYROXINE. [Concomitant]
     Active Substance: LEVOTHYROXINE
  5. VITAMIN C [Concomitant]
     Active Substance: ASCORBIC ACID
  6. LEXAPRO [Concomitant]
     Active Substance: ESCITALOPRAM OXALATE
  7. LUTEIN [Concomitant]
     Active Substance: LUTEIN
  8. AMPYRA [Suspect]
     Active Substance: DALFAMPRIDINE
     Route: 065
  9. BACLOFEN. [Concomitant]
     Active Substance: BACLOFEN
  10. CALCIUM [Concomitant]
     Active Substance: CALCIUM
  11. MULTIVITAMIN [Concomitant]
     Active Substance: VITAMINS
  12. OXYBUTYNIN. [Concomitant]
     Active Substance: OXYBUTYNIN CHLORIDE

REACTIONS (3)
  - Motor dysfunction [Unknown]
  - Throat irritation [Not Recovered/Not Resolved]
  - Fall [Unknown]
